FAERS Safety Report 12138470 (Version 5)
Quarter: 2016Q2

REPORT INFORMATION
  Report Type: Spontaneous
  Country: US (occurrence: US)
  Receive Date: 20160302
  Receipt Date: 20160512
  Transmission Date: 20160815
  Serious: Yes (Other)
  Sender: FDA-Public Use
  Company Number: US-PFIZER INC-2016127957

PATIENT
  Age: 32 Year
  Sex: Male

DRUGS (5)
  1. LISINOPRIL. [Concomitant]
     Active Substance: LISINOPRIL
     Dosage: 20 MG, DAILY  (1 PO QD)
     Route: 048
  2. GABAPENTIN. [Suspect]
     Active Substance: GABAPENTIN
     Indication: NEUROPATHY PERIPHERAL
     Dosage: 100 MG, 3X/DAY
     Route: 048
     Dates: end: 20160203
  3. LEVONOR [Concomitant]
     Dosage: UNK UNK, 1X/DAY (30 WEEKS QHS)
  4. VIAGRA [Concomitant]
     Active Substance: SILDENAFIL CITRATE
     Dosage: 50 MG, UNK (#6 AS DIRECTED)
  5. NOVOLIN R [Concomitant]
     Active Substance: INSULIN HUMAN
     Dosage: UNK (10 UNIT PRIOR TO MEALS)

REACTIONS (6)
  - Suicidal ideation [Unknown]
  - Insomnia [Unknown]
  - Depression [Unknown]
  - Product use issue [Unknown]
  - Anger [Unknown]
  - Irritability [Unknown]
